FAERS Safety Report 9444996 (Version 4)
Quarter: 2013Q4

REPORT INFORMATION
  Report Type: Spontaneous
  Country: DE (occurrence: None)
  Receive Date: 20130729
  Receipt Date: 20131219
  Transmission Date: 20140711
  Serious: Yes (Life-Threatening, Other)
  Sender: FDA-Public Use
  Company Number: AEDEU201300258

PATIENT
  Age: 50 Year
  Sex: Female
  Weight: 50 kg

DRUGS (3)
  1. PROLASTIN [Suspect]
     Indication: ALPHA-1 ANTI-TRYPSIN DEFICIENCY
     Route: 042
     Dates: start: 2011
  2. SPIVIRA [Concomitant]
  3. FORMOTOP [Concomitant]

REACTIONS (15)
  - Angioedema [None]
  - Pyrexia [None]
  - Hypersensitivity [None]
  - Feeling abnormal [None]
  - Influenza [None]
  - Pain in extremity [None]
  - Serum sickness [None]
  - Condition aggravated [None]
  - Asthenia [None]
  - Myalgia [None]
  - Arthralgia [None]
  - Dyspnoea [None]
  - Chills [None]
  - Skin disorder [None]
  - Type III immune complex mediated reaction [None]
